FAERS Safety Report 8231461-8 (Version None)
Quarter: 2012Q1

REPORT INFORMATION
  Report Type: 
  Country: None (occurrence: None)
  Receive Date: 20120323
  Receipt Date: 20120313
  Transmission Date: 20120608
  Serious: No
  Sender: FDA-Public Use
  Company Number: US-B.I. PHARMACEUTICALS,INC./RIDGEFIELD-2012-BP-04821BP

PATIENT
  Sex: Female

DRUGS (9)
  1. LUTEIN [Concomitant]
     Indication: MACULAR DEGENERATION
     Dosage: 6 MCG
     Route: 048
     Dates: start: 20100101
  2. ASPIRIN [Concomitant]
     Indication: PROPHYLAXIS
     Dosage: 325 MG
     Route: 048
  3. LEVOTHYROXINE SODIUM [Concomitant]
     Indication: HYPOTHYROIDISM
     Dosage: 12.5 MCG
     Route: 048
     Dates: start: 20040101
  4. METOPROLOL TARTRATE [Concomitant]
     Indication: HEART RATE INCREASED
     Dosage: 50 MCG
     Route: 048
     Dates: start: 20040801
  5. CALCIUM D3 [Concomitant]
     Indication: VITAMIN SUPPLEMENTATION
     Route: 048
  6. FORADIL [Concomitant]
     Indication: ASTHMA
     Route: 055
     Dates: start: 20120309
  7. SPIRIVA [Suspect]
     Indication: CHRONIC OBSTRUCTIVE PULMONARY DISEASE
     Dosage: 18 MCG
     Route: 055
     Dates: start: 20060101
  8. ONE-A-DAY VITAMIN [Concomitant]
     Indication: VITAMIN SUPPLEMENTATION
     Route: 048
  9. MAGNESIUM [Concomitant]
     Indication: VITAMIN SUPPLEMENTATION
     Dosage: 125 MG
     Route: 048

REACTIONS (2)
  - COUGH [None]
  - BRONCHITIS [None]
